FAERS Safety Report 15454908 (Version 1)
Quarter: 2018Q4

REPORT INFORMATION
  Report Type: Spontaneous
  Country: US (occurrence: US)
  Receive Date: 20181002
  Receipt Date: 20181002
  Transmission Date: 20190204
  Serious: Yes (Hospitalization, Other)
  Sender: FDA-Public Use
  Company Number: US-RADIUS HEALTH, INC.-2018US002379

PATIENT
  Age: 76 Year
  Sex: Female

DRUGS (1)
  1. TYMLOS [Suspect]
     Active Substance: ABALOPARATIDE
     Indication: OSTEOPOROSIS POSTMENOPAUSAL
     Dosage: 80 MCG, QD
     Route: 058
     Dates: start: 20180925, end: 20180925

REACTIONS (6)
  - Hemiparesis [Recovered/Resolved]
  - Lack of spontaneous speech [Recovered/Resolved]
  - Extraocular muscle paresis [Recovered/Resolved]
  - Abnormal behaviour [Recovered/Resolved]
  - Transient ischaemic attack [Unknown]
  - Sluggishness [Recovered/Resolved]

NARRATIVE: CASE EVENT DATE: 20180925
